FAERS Safety Report 18037988 (Version 1)
Quarter: 2020Q3

REPORT INFORMATION
  Report Type: Spontaneous
  Country: US (occurrence: US)
  Receive Date: 20200717
  Receipt Date: 20200717
  Transmission Date: 20201103
  Serious: Yes (Death, Hospitalization, Other)
  Sender: FDA-Public Use
  Company Number: US-GILEAD-2020-0483702

PATIENT
  Age: 54 Year
  Sex: Male
  Weight: 104.3 kg

DRUGS (25)
  1. ATORVASTATIN [Concomitant]
     Active Substance: ATORVASTATIN
  2. CEFTRIAXONE. [Concomitant]
     Active Substance: CEFTRIAXONE
  3. ENOXAPARIN [Concomitant]
     Active Substance: ENOXAPARIN
  4. VECURONIUM [Concomitant]
     Active Substance: VECURONIUM BROMIDE
  5. FENTANYL. [Concomitant]
     Active Substance: FENTANYL
  6. PHENYLEPHRINE [Concomitant]
     Active Substance: PHENYLEPHRINE HYDROCHLORIDE
  7. VASOPRESSIN. [Concomitant]
     Active Substance: VASOPRESSIN
  8. METFORMIN [Concomitant]
     Active Substance: METFORMIN HYDROCHLORIDE
  9. MIDAZOLAM. [Concomitant]
     Active Substance: MIDAZOLAM
  10. PROPOFOL. [Concomitant]
     Active Substance: PROPOFOL
  11. EPINEPHRINE. [Concomitant]
     Active Substance: EPINEPHRINE
  12. FAMOTIDINE. [Concomitant]
     Active Substance: FAMOTIDINE
  13. FUROSEMIDE. [Concomitant]
     Active Substance: FUROSEMIDE
  14. NOREPINEPHRINE. [Concomitant]
     Active Substance: NOREPINEPHRINE
  15. ROCURONIUM [Concomitant]
     Active Substance: ROCURONIUM BROMIDE
  16. REMDESIVIR. [Suspect]
     Active Substance: REMDESIVIR
     Indication: COVID-19 PNEUMONIA
     Dosage: 200 MG, ONCE
     Route: 042
     Dates: start: 20200624, end: 20200624
  17. AZITHROMYCIN ANHYDROUS. [Concomitant]
     Active Substance: AZITHROMYCIN ANHYDROUS
  18. INSULIN LISPRO [Concomitant]
     Active Substance: INSULIN LISPRO
  19. SODIUM BICARBONATE. [Concomitant]
     Active Substance: SODIUM BICARBONATE
  20. TOCILIZUMAB. [Concomitant]
     Active Substance: TOCILIZUMAB
  21. ASPIRIN (E.C.) [Concomitant]
     Active Substance: ASPIRIN
  22. EPOPROSTENOL. [Concomitant]
     Active Substance: EPOPROSTENOL
  23. LANTUS [Concomitant]
     Active Substance: INSULIN GLARGINE
  24. REMDESIVIR. [Suspect]
     Active Substance: REMDESIVIR
     Dosage: 100 MG, QD
     Route: 042
     Dates: start: 20200625, end: 20200628
  25. DEXAMETHASONE. [Concomitant]
     Active Substance: DEXAMETHASONE

REACTIONS (2)
  - Cardiac arrest [Fatal]
  - Hypotension [Unknown]

NARRATIVE: CASE EVENT DATE: 20200630
